FAERS Safety Report 7809060-9 (Version None)
Quarter: 2011Q4

REPORT INFORMATION
  Report Type: 
  Country: None (occurrence: None)
  Receive Date: 20111012
  Receipt Date: 20111011
  Transmission Date: 20120403
  Serious: Yes (Other)
  Sender: FDA-Public Use
  Company Number: US-JNJFOC-20091101655

PATIENT
  Sex: Female
  Weight: 53.07 kg

DRUGS (24)
  1. AMBIEN CR [Concomitant]
     Indication: SLEEP DISORDER
     Route: 048
  2. AMRIX [Concomitant]
     Indication: FIBROMYALGIA
     Route: 048
  3. CALCIUM CARBONATE [Concomitant]
     Route: 065
  4. NUCYNTA [Concomitant]
     Indication: BREAKTHROUGH PAIN
     Route: 048
     Dates: start: 20090101
  5. DURAGESIC-100 [Suspect]
     Route: 062
     Dates: start: 20091030
  6. PROTONIX [Concomitant]
     Indication: GASTROINTESTINAL DISORDER THERAPY
     Route: 048
  7. ZETIA [Concomitant]
     Indication: BLOOD CHOLESTEROL
     Route: 048
  8. MULTIVITAMINES [Concomitant]
     Route: 065
  9. DURAGESIC-100 [Suspect]
     Dates: start: 20040101
  10. PROCARDIA [Concomitant]
     Indication: ANTICOAGULANT THERAPY
  11. ELAVIL [Concomitant]
     Indication: PAIN
     Route: 048
  12. FIORICET [Concomitant]
     Indication: MIGRAINE
  13. SAVELLA [Concomitant]
     Indication: FIBROMYALGIA
     Route: 065
     Dates: start: 20090101
  14. FENTANYL-100 [Suspect]
     Indication: PAIN
     Route: 062
  15. DURAGESIC-100 [Suspect]
     Dates: start: 20090401, end: 20091030
  16. ZONEGRAN [Concomitant]
     Indication: CONVULSION
     Route: 048
  17. MOBIC [Concomitant]
     Indication: FIBROMYALGIA
     Route: 048
     Dates: start: 20090101
  18. ASPIRIN [Concomitant]
     Route: 065
  19. FISH OIL [Concomitant]
     Route: 065
  20. ASCORBIC ACID [Concomitant]
     Route: 065
  21. DURAGESIC-100 [Suspect]
     Indication: PAIN
     Dates: start: 20090401, end: 20091030
  22. VASOTEC [Concomitant]
     Indication: BLOOD PRESSURE
     Route: 048
  23. LUNESTA [Concomitant]
     Indication: SLEEP DISORDER
     Route: 065
  24. ACTONEL [Concomitant]
     Indication: OSTEOPOROSIS
     Dosage: ONE PER WEEK
     Route: 065

REACTIONS (7)
  - INAPPROPRIATE SCHEDULE OF DRUG ADMINISTRATION [None]
  - FUNGAL INFECTION [None]
  - APPLICATION SITE RASH [None]
  - RAYNAUD'S PHENOMENON [None]
  - WRONG TECHNIQUE IN DRUG USAGE PROCESS [None]
  - PRODUCT ADHESION ISSUE [None]
  - APPLICATION SITE ERYTHEMA [None]
